FAERS Safety Report 15860023 (Version 2)
Quarter: 2020Q3

REPORT INFORMATION
  Report Type: Report from Study
  Country: US (occurrence: US)
  Receive Date: 20190123
  Receipt Date: 20200825
  Transmission Date: 20201102
  Serious: Yes (Hospitalization)
  Sender: FDA-Public Use
  Company Number: US-SEATTLE GENETICS-2018SGN02586

PATIENT

DRUGS (21)
  1. ROMIDEPSIN. [Suspect]
     Active Substance: ROMIDEPSIN
     Indication: CUTANEOUS T-CELL LYMPHOMA
     Route: 065
  2. AMIODARONE [Concomitant]
     Active Substance: AMIODARONE
     Dosage: 200 DF, QD
     Route: 048
  3. ESOMEPRAZOLE MAGNESIUM. [Concomitant]
     Active Substance: ESOMEPRAZOLE MAGNESIUM
     Dosage: 40 MG, UNK
     Route: 048
  4. LIDOCAINE HYDROCHLORIDE. [Concomitant]
     Active Substance: LIDOCAINE HYDROCHLORIDE
     Dosage: 5 %, UNK
  5. TESTOSTERONE. [Concomitant]
     Active Substance: TESTOSTERONE
     Dosage: 1.62 %, UNK
     Route: 062
  6. LEVETHYROXINE SODIUM [Concomitant]
     Dosage: 25 ?G, UNK
  7. LIDOCAINE HYDROCHLORIDE. [Concomitant]
     Active Substance: LIDOCAINE HYDROCHLORIDE
     Dosage: 2 %, UNK
  8. MUPIROCIN. [Concomitant]
     Active Substance: MUPIROCIN
     Dosage: 2 %, UNK
  9. AMLODIPINE BESYLATE. [Concomitant]
     Active Substance: AMLODIPINE BESYLATE
     Dosage: 5 MG, UNK
     Route: 048
  10. ASCORBIC ACID. [Concomitant]
     Active Substance: ASCORBIC ACID
     Dosage: 1000 MG, UNK
     Route: 048
  11. HYDROCORTISONE. [Concomitant]
     Active Substance: HYDROCORTISONE
  12. OMEGA?3 FATTY ACIDS [Concomitant]
     Active Substance: OMEGA-3 FATTY ACIDS
     Dosage: 2 G, UNK
  13. METOPROLOL TARTRATE. [Concomitant]
     Active Substance: METOPROLOL TARTRATE
     Dosage: 12.5 MG, BID
     Route: 048
  14. DOCUSATE SODIUM. [Concomitant]
     Active Substance: DOCUSATE SODIUM
     Dosage: 100 MG, UNK
  15. DOCUSATE SODIUM W/SENNA [Concomitant]
     Active Substance: DOCUSATE SODIUM\SENNA LEAF
     Dosage: UNK MG, BID
  16. CALCIUM CARBONATE. [Concomitant]
     Active Substance: CALCIUM CARBONATE
     Route: 048
  17. CHOLECALCIFEROL [Concomitant]
     Active Substance: CHOLECALCIFEROL
     Dosage: 2000 UNK, UNK
  18. BRENTUXIMAB VEDOTIN [Suspect]
     Active Substance: BRENTUXIMAB VEDOTIN
     Indication: CUTANEOUS T-CELL LYMPHOMA
     Route: 065
  19. FUROSEMIDE. [Concomitant]
     Active Substance: FUROSEMIDE
     Dosage: 40 MG, UNK
     Route: 048
  20. AMYLASE W/LIPASE/PROTEASE [Concomitant]
     Active Substance: AMYLASE\LIPASE\PROTEASE
  21. SOLIFENACIN SUCCINATE. [Concomitant]
     Active Substance: SOLIFENACIN SUCCINATE
     Dosage: 10 MG, UNK

REACTIONS (2)
  - Sedation [Recovered/Resolved]
  - Lethargy [Recovered/Resolved]

NARRATIVE: CASE EVENT DATE: 20170713
